FAERS Safety Report 7452276-4 (Version None)
Quarter: 2011Q2

REPORT INFORMATION
  Report Type: 
  Country: None (occurrence: None)
  Receive Date: 20110502
  Receipt Date: 20110418
  Transmission Date: 20111010
  Serious: No
  Sender: FDA-Public Use
  Company Number: US-B.I. PHARMACEUTICALS,INC./RIDGEFIELD-2011-BP-11310BP

PATIENT
  Sex: Female

DRUGS (13)
  1. LOSARTAN POTASSIUM [Concomitant]
     Indication: HYPERTENSION
  2. CITALOPRAM [Concomitant]
     Indication: DEPRESSION
  3. VITAMIN D [Concomitant]
     Indication: ROUTINE HEALTH MAINTENANCE
  4. KLOR-CON [Concomitant]
     Indication: BLOOD POTASSIUM DECREASED
  5. ATIVAN [Concomitant]
     Indication: ANXIETY
  6. OXYCODONE [Concomitant]
     Indication: PAIN
  7. SYNTHROID [Concomitant]
     Indication: HYPOTHYROIDISM
  8. PROPANALOL [Concomitant]
     Indication: HYPERTENSION
  9. NEURONTIN [Concomitant]
     Indication: NEUROPATHY PERIPHERAL
  10. SPIRIVA [Suspect]
     Indication: CHRONIC OBSTRUCTIVE PULMONARY DISEASE
     Dosage: 18 MCG
     Route: 055
     Dates: start: 20110313
  11. RANITIDINE [Concomitant]
     Indication: ABDOMINAL DISCOMFORT
  12. REQUIP [Concomitant]
     Indication: RESTLESS LEGS SYNDROME
  13. LASIX [Concomitant]
     Indication: OEDEMA

REACTIONS (1)
  - DYSPNOEA [None]
